FAERS Safety Report 14746979 (Version 1)
Quarter: 2018Q2

REPORT INFORMATION
  Report Type: Spontaneous
  Country: FR (occurrence: FR)
  Receive Date: 20180411
  Receipt Date: 20180411
  Transmission Date: 20180711
  Serious: Yes (Hospitalization)
  Sender: FDA-Public Use
  Company Number: FR-MYLANLABS-2018M1022397

PATIENT
  Age: 69 Year
  Sex: Male

DRUGS (1)
  1. AZATHIOPRINE. [Suspect]
     Active Substance: AZATHIOPRINE
     Indication: MUSCULAR WEAKNESS
     Dosage: 300 MG, QD
     Route: 048
     Dates: start: 201709, end: 20171022

REACTIONS (2)
  - Hepatitis acute [Recovered/Resolved]
  - Bicytopenia [Not Recovered/Not Resolved]

NARRATIVE: CASE EVENT DATE: 20171020
